FAERS Safety Report 21614416 (Version 1)
Quarter: 2022Q4

REPORT INFORMATION
  Report Type: Spontaneous
  Country: US (occurrence: None)
  Receive Date: 20221118
  Receipt Date: 20221118
  Transmission Date: 20230112
  Serious: Yes (Other)
  Sender: FDA-Public Use
  Company Number: US-ALVOGEN-2022-ALVOGEN-120776

PATIENT
  Age: 38 Year
  Sex: Male

DRUGS (4)
  1. LISINOPRIL [Suspect]
     Active Substance: LISINOPRIL
     Indication: Product used for unknown indication
     Dates: end: 20220523
  2. JYNARQUE [Suspect]
     Active Substance: TOLVAPTAN
     Indication: Congenital cystic kidney disease
     Dates: start: 20220419
  3. JYNARQUE [Suspect]
     Active Substance: TOLVAPTAN
     Indication: Congenital cystic kidney disease
     Dosage: 8 HOURS LATER
     Route: 048
     Dates: start: 202204, end: 20220523
  4. JYNARQUE [Suspect]
     Active Substance: TOLVAPTAN
     Indication: Congenital cystic kidney disease
     Dates: start: 20220418

REACTIONS (4)
  - Renal disorder [Recovering/Resolving]
  - Renal impairment [Recovering/Resolving]
  - Dysgeusia [Unknown]
  - Polydipsia [Unknown]

NARRATIVE: CASE EVENT DATE: 20220502
